FAERS Safety Report 25649606 (Version 1)
Quarter: 2025Q3

REPORT INFORMATION
  Report Type: Spontaneous
  Country: US (occurrence: None)
  Receive Date: 20250805
  Receipt Date: 20250805
  Transmission Date: 20251021
  Serious: No
  Sender: FDA-CTU
  Company Number: None

PATIENT
  Age: 38 Year
  Sex: Female

DRUGS (1)
  1. ZURZUVAE [Suspect]
     Active Substance: ZURANOLONE
     Dosage: 50 MG DAILY ORAL
     Route: 048

REACTIONS (2)
  - Fatigue [None]
  - Disorientation [None]

NARRATIVE: CASE EVENT DATE: 20250715
